FAERS Safety Report 8453860 (Version 3)
Quarter: 2013Q4

REPORT INFORMATION
  Report Type: Spontaneous
  Country: AU (occurrence: AU)
  Receive Date: 20120312
  Receipt Date: 20131003
  Transmission Date: 20140711
  Serious: Yes (Death, Hospitalization)
  Sender: FDA-Public Use
  Company Number: AU-PFIZER INC-2012062398

PATIENT
  Age: 62 Year
  Sex: Female

DRUGS (11)
  1. ATORVASTATIN CALCIUM [Suspect]
     Indication: DYSLIPIDAEMIA
     Dosage: 20 MG, UNK
     Route: 065
  2. VYTORIN [Suspect]
     Indication: DYSLIPIDAEMIA
     Dosage: EZETIMIBE 10 MG/ SIMVASTATIN 20MG, UNK
  3. GLICLAZIDE [Concomitant]
     Indication: TYPE 2 DIABETES MELLITUS
     Dosage: 80 MG, TDS
     Route: 065
  4. METFORMIN HYDROCHLORIDE [Concomitant]
     Indication: TYPE 2 DIABETES MELLITUS
     Dosage: 500 MG, TDS
     Route: 065
  5. METFORMIN HYDROCHLORIDE [Concomitant]
     Dosage: 80 MG, 3X/DAY
  6. DIGOXIN [Concomitant]
     Dosage: 125 UG, UNK
  7. WARFARIN [Concomitant]
  8. SOTALOL [Concomitant]
     Dosage: 80 MG, 2X/DAY
  9. PRAZOSIN [Concomitant]
     Dosage: 5 MG, 3X/DAY
  10. PERINDOPRIL [Concomitant]
     Dosage: 10 MG, 3X/DAY
  11. FLUOXETINE [Concomitant]
     Dosage: 40 MG MANE

REACTIONS (2)
  - Rhabdomyolysis [Fatal]
  - Respiratory failure [Fatal]
